FAERS Safety Report 5165567-7 (Version None)
Quarter: 2006Q4

REPORT INFORMATION
  Report Type: 
  Country: None (occurrence: None)
  Receive Date: 20061206
  Receipt Date: 20061204
  Transmission Date: 20070319
  Serious: Yes (Life-Threatening, Congenital Anomaly, Other)
  Sender: FDA-Public Use
  Company Number: US-GLAXOSMITHKLINE-A0630324A

PATIENT
  Sex: Female

DRUGS (1)
  1. PAXIL [Suspect]
     Indication: DRUG USE FOR UNKNOWN INDICATION

REACTIONS (7)
  - AORTIC DISORDER [None]
  - CARDIAC VALVE DISEASE [None]
  - DRUG EXPOSURE DURING PREGNANCY [None]
  - FALLOT'S TETRALOGY [None]
  - HYPERTROPHY [None]
  - OBSTRUCTIVE AIRWAYS DISORDER [None]
  - VENTRICULAR SEPTAL DEFECT [None]
